FAERS Safety Report 10874394 (Version 3)
Quarter: 2015Q1

REPORT INFORMATION
  Report Type: Spontaneous
  Country: DK (occurrence: DK)
  Receive Date: 20150227
  Receipt Date: 20150303
  Transmission Date: 20150721
  Serious: Yes (Other)
  Sender: FDA-Public Use
  Company Number: DK-JNJFOC-20150216906

PATIENT
  Age: 41 Year
  Sex: Female

DRUGS (24)
  1. REMICADE [Suspect]
     Active Substance: INFLIXIMAB
     Indication: COLITIS ULCERATIVE
     Dosage: 9TH INFUSION
     Route: 042
     Dates: start: 20110302
  2. REMICADE [Suspect]
     Active Substance: INFLIXIMAB
     Indication: COLITIS ULCERATIVE
     Dosage: 9TH INFUSION
     Route: 042
     Dates: start: 20100901
  3. REMICADE [Suspect]
     Active Substance: INFLIXIMAB
     Indication: COLITIS ULCERATIVE
     Dosage: 9TH INFUSION
     Route: 042
     Dates: start: 20120329
  4. REMICADE [Suspect]
     Active Substance: INFLIXIMAB
     Indication: COLITIS ULCERATIVE
     Dosage: 9TH INFUSION
     Route: 042
     Dates: start: 20111115
  5. REMICADE [Suspect]
     Active Substance: INFLIXIMAB
     Indication: COLITIS ULCERATIVE
     Dosage: 9TH INFUSION
     Route: 042
     Dates: start: 20100609
  6. REMICADE [Suspect]
     Active Substance: INFLIXIMAB
     Indication: COLITIS ULCERATIVE
     Dosage: 9TH INFUSION
     Route: 042
     Dates: start: 20120215
  7. REMICADE [Suspect]
     Active Substance: INFLIXIMAB
     Indication: COLITIS ULCERATIVE
     Dosage: 9TH INFUSION
     Route: 042
     Dates: start: 20110818
  8. REMICADE [Suspect]
     Active Substance: INFLIXIMAB
     Indication: COLITIS ULCERATIVE
     Dosage: 9TH INFUSION
     Route: 042
     Dates: start: 20110412
  9. PSYLLIUM HUSK [Concomitant]
     Active Substance: PSYLLIUM HUSK
     Route: 065
  10. REMICADE [Suspect]
     Active Substance: INFLIXIMAB
     Indication: COLITIS ULCERATIVE
     Dosage: 9TH INFUSION
     Route: 042
     Dates: start: 20100315
  11. REMICADE [Suspect]
     Active Substance: INFLIXIMAB
     Indication: COLITIS ULCERATIVE
     Dosage: 9TH INFUSION
     Route: 042
     Dates: start: 20100129
  12. REMICADE [Suspect]
     Active Substance: INFLIXIMAB
     Indication: COLITIS ULCERATIVE
     Route: 042
     Dates: start: 20090123
  13. REMICADE [Suspect]
     Active Substance: INFLIXIMAB
     Indication: COLITIS ULCERATIVE
     Dosage: 9TH INFUSION
     Route: 042
     Dates: start: 201101
  14. REMICADE [Suspect]
     Active Substance: INFLIXIMAB
     Indication: COLITIS ULCERATIVE
     Dosage: 9TH INFUSION
     Route: 042
     Dates: start: 20101203
  15. REMICADE [Suspect]
     Active Substance: INFLIXIMAB
     Indication: COLITIS ULCERATIVE
     Dosage: 9TH INFUSION
     Route: 042
     Dates: start: 20100721
  16. REMICADE [Suspect]
     Active Substance: INFLIXIMAB
     Indication: COLITIS ULCERATIVE
     Dosage: 9TH INFUSION
     Route: 042
     Dates: start: 20100427
  17. REMICADE [Suspect]
     Active Substance: INFLIXIMAB
     Indication: COLITIS ULCERATIVE
     Dosage: 9TH INFUSION
     Route: 042
     Dates: start: 20120423, end: 20120423
  18. REMICADE [Suspect]
     Active Substance: INFLIXIMAB
     Indication: COLITIS ULCERATIVE
     Dosage: 9TH INFUSION
     Route: 042
     Dates: start: 20101015
  19. PREDNISOLONE. [Suspect]
     Active Substance: PREDNISOLONE
     Indication: COLITIS ULCERATIVE
     Route: 065
     Dates: start: 20100726, end: 20100912
  20. REMICADE [Suspect]
     Active Substance: INFLIXIMAB
     Indication: COLITIS ULCERATIVE
     Dosage: 9TH INFUSION
     Route: 042
     Dates: start: 20120103
  21. REMICADE [Suspect]
     Active Substance: INFLIXIMAB
     Indication: COLITIS ULCERATIVE
     Dosage: 9TH INFUSION
     Route: 042
     Dates: start: 20110810
  22. REMICADE [Suspect]
     Active Substance: INFLIXIMAB
     Indication: COLITIS ULCERATIVE
     Dosage: 9TH INFUSION
     Route: 042
     Dates: start: 20110629
  23. REMICADE [Suspect]
     Active Substance: INFLIXIMAB
     Indication: COLITIS ULCERATIVE
     Dosage: 9TH INFUSION
     Route: 042
     Dates: start: 20110525
  24. REMICADE [Suspect]
     Active Substance: INFLIXIMAB
     Indication: COLITIS ULCERATIVE
     Dosage: 9TH INFUSION
     Route: 042
     Dates: start: 20091215

REACTIONS (16)
  - Eczema [Not Recovered/Not Resolved]
  - Rash generalised [Not Recovered/Not Resolved]
  - Injury [Not Recovered/Not Resolved]
  - Drug ineffective [Unknown]
  - Visual impairment [Not Recovered/Not Resolved]
  - Dry skin [Not Recovered/Not Resolved]
  - Adverse reaction [Unknown]
  - Seborrhoeic dermatitis [Not Recovered/Not Resolved]
  - Cataract [Unknown]
  - Photophobia [Not Recovered/Not Resolved]
  - Eye injury [Not Recovered/Not Resolved]
  - Colectomy [Unknown]
  - Serratia infection [Unknown]
  - Keratitis [Not Recovered/Not Resolved]
  - Pruritus [Not Recovered/Not Resolved]
  - Pain [Unknown]

NARRATIVE: CASE EVENT DATE: 2010
